FAERS Safety Report 17432173 (Version 1)
Quarter: 2020Q1

REPORT INFORMATION
  Report Type: Spontaneous
  Country: US (occurrence: US)
  Receive Date: 20200218
  Receipt Date: 20200218
  Transmission Date: 20200409
  Serious: No
  Sender: FDA-Public Use
  Company Number: US-SA-2020SA039592

PATIENT
  Age: 57 Year
  Sex: Male

DRUGS (25)
  1. DOXYCYCLINE. [Concomitant]
     Active Substance: DOXYCYCLINE
  2. HYDROCHLOROTHIAZIDE;OLMESARTAN [Concomitant]
  3. OLMESARTAN MEDOXOMIL. [Concomitant]
     Active Substance: OLMESARTAN MEDOXOMIL
  4. VENTOLIN HFA [Concomitant]
     Active Substance: ALBUTEROL SULFATE
  5. ELIQUIS [Concomitant]
     Active Substance: APIXABAN
  6. FORTEO [Concomitant]
     Active Substance: TERIPARATIDE
  7. APAP;HYDROCODONE [Concomitant]
     Active Substance: ACETAMINOPHEN\HYDROCODONE
  8. PROCTOZONE HC [Concomitant]
     Active Substance: HYDROCORTISONE
  9. BUDESONIDE. [Concomitant]
     Active Substance: BUDESONIDE
  10. DULERA [Concomitant]
     Active Substance: FORMOTEROL FUMARATE DIHYDRATE\MOMETASONE FUROATE
  11. TADALAFIL. [Concomitant]
     Active Substance: TADALAFIL
  12. TESTOSTERONE CYPIONATE. [Concomitant]
     Active Substance: TESTOSTERONE CYPIONATE
  13. AZELASTINE. [Concomitant]
     Active Substance: AZELASTINE HYDROCHLORIDE
  14. GENTAMICIN. [Concomitant]
     Active Substance: GENTAMICIN
  15. TAMSULOSIN [Concomitant]
     Active Substance: TAMSULOSIN
  16. AMITRIPTYLINE [Concomitant]
     Active Substance: AMITRIPTYLINE
  17. GABAPENTIN. [Concomitant]
     Active Substance: GABAPENTIN
  18. MUPIROCIN. [Concomitant]
     Active Substance: MUPIROCIN
  19. PREDNISONE. [Concomitant]
     Active Substance: PREDNISONE
  20. GEMFIBROZIL. [Concomitant]
     Active Substance: GEMFIBROZIL
  21. PREDNISOLONE. [Concomitant]
     Active Substance: PREDNISOLONE
  22. ZOLPIDEM [Concomitant]
     Active Substance: ZOLPIDEM TARTRATE
  23. DUPIXENT [Suspect]
     Active Substance: DUPILUMAB
     Indication: ASTHMA
     Dosage: 300 MG, QOW
     Route: 058
     Dates: start: 20191203
  24. POTASSIUM CHLORIDE. [Concomitant]
     Active Substance: POTASSIUM CHLORIDE
  25. VITAMIN D NOS [Concomitant]
     Active Substance: VITAMIN D NOS

REACTIONS (1)
  - Eye infection [Not Recovered/Not Resolved]

NARRATIVE: CASE EVENT DATE: 202002
